FAERS Safety Report 13042556 (Version 2)
Quarter: 2016Q4

REPORT INFORMATION
  Report Type: Spontaneous
  Country: US (occurrence: US)
  Receive Date: 20161219
  Receipt Date: 20161229
  Transmission Date: 20170207
  Serious: Yes (Death, Other)
  Sender: FDA-Public Use
  Company Number: US-APOTEX-2016AP015904

PATIENT
  Age: 10 Year
  Sex: Male

DRUGS (3)
  1. METRONIDAZOLE. [Suspect]
     Active Substance: METRONIDAZOLE
     Indication: PRODUCT USED FOR UNKNOWN INDICATION
     Dosage: UNK
     Route: 042
  2. ONDANSETRON INJECTION USP [Suspect]
     Active Substance: ONDANSETRON
     Indication: GASTROENTERITIS
     Dosage: 4 MG, UNK
     Route: 042
  3. ONDANSETRON INJECTION USP [Suspect]
     Active Substance: ONDANSETRON
     Dosage: 4 MG, UNK
     Route: 042

REACTIONS (5)
  - Drug interaction [Unknown]
  - Unresponsive to stimuli [Unknown]
  - Cardiac arrest [Fatal]
  - Ventricular tachycardia [Unknown]
  - Dyspnoea [Unknown]
